FAERS Safety Report 9122450 (Version 1)
Quarter: 2013Q1

REPORT INFORMATION
  Report Type: Spontaneous
  Country: US (occurrence: US)
  Receive Date: 20130115
  Receipt Date: 20130115
  Transmission Date: 20140127
  Serious: No
  Sender: FDA-Public Use
  Company Number: US-PFIZER INC-2013013117

PATIENT
  Age: 52 Year
  Sex: Female
  Weight: 65.76 kg

DRUGS (1)
  1. DEPO-MEDROL [Suspect]
     Indication: ARTHRALGIA
     Dosage: 80 MG, CYCLIC
     Dates: start: 2010

REACTIONS (2)
  - Swollen tongue [Recovered/Resolved]
  - Lip swelling [Recovered/Resolved]
